FAERS Safety Report 9479485 (Version 2)
Quarter: 2013Q4

REPORT INFORMATION
  Report Type: Report from Study
  Country: JP (occurrence: JP)
  Receive Date: 20130827
  Receipt Date: 20131129
  Transmission Date: 20140711
  Serious: Yes (Death)
  Sender: FDA-Public Use
  Company Number: JP-MERCK-1308JPN012286

PATIENT
  Age: 88 Year
  Sex: Female
  Weight: 48.8 kg

DRUGS (9)
  1. REFLEX [Suspect]
     Indication: DEPRESSION
     Dosage: 15 MG, QD
     Route: 048
     Dates: start: 20120622, end: 20120717
  2. ZONISAMIDE [Concomitant]
     Indication: EPILEPSY
     Dosage: 100 MG, QD
     Route: 048
     Dates: start: 20120622, end: 20120717
  3. BIFIDOBACTERIUM INFANTIS [Concomitant]
     Indication: GASTRIC DISORDER
     Dosage: 3 G, QD
     Route: 048
     Dates: start: 20120622, end: 20120717
  4. BIFIDOBACTERIUM LONGUM [Concomitant]
     Indication: GASTRIC DISORDER
     Dosage: 3 G, QD
     Route: 048
     Dates: start: 20120622, end: 20120717
  5. LANSOPRAZOLE [Concomitant]
     Indication: GASTRIC ULCER
     Dosage: 15 MG, QD
     Route: 048
     Dates: start: 20120612, end: 20120717
  6. ACETAMINOPHEN (+) TRAMADOL HYDROCHLORIDE [Concomitant]
     Indication: BACK PAIN
     Dosage: 2 TABLETS DAILY DOSE
     Route: 048
     Dates: start: 20120705, end: 20120717
  7. TORSEMIDE [Concomitant]
     Indication: CARDIAC FAILURE
     Dosage: 2 MG, QD
     Route: 048
     Dates: start: 20120716, end: 20120717
  8. POTASSIUM GLUCONATE [Concomitant]
     Indication: HYPOKALAEMIA
     Dosage: 3 G, QD
     Route: 048
     Dates: start: 20120716, end: 20120717
  9. NITROGLYCERIN [Concomitant]
     Indication: CARDIAC FAILURE
     Dosage: 25 MG, QD, ^XTERNAL USE^
     Dates: start: 20120716, end: 20120718

REACTIONS (1)
  - Cerebral infarction [Fatal]
